FAERS Safety Report 8146681-0 (Version None)
Quarter: 2012Q1

REPORT INFORMATION
  Report Type: 
  Country: None (occurrence: None)
  Receive Date: 20120217
  Receipt Date: 20110601
  Transmission Date: 20120608
  Serious: No
  Sender: FDA-Public Use
  Company Number: US-ABBOTT-11P-163-0729665-00

PATIENT
  Sex: Female
  Weight: 86.26 kg

DRUGS (3)
  1. SIMCOR [Suspect]
     Indication: PRODUCT USED FOR UNKNOWN INDICATION
     Dates: start: 20110101
  2. HYDROCHLOROTHIAZIDE [Concomitant]
     Indication: PRODUCT USED FOR UNKNOWN INDICATION
  3. METFORMIN HCL [Concomitant]
     Indication: PRODUCT USED FOR UNKNOWN INDICATION

REACTIONS (7)
  - LOW DENSITY LIPOPROTEIN DECREASED [None]
  - ERYTHEMA [None]
  - HYPERHIDROSIS [None]
  - FEELING HOT [None]
  - POOR QUALITY SLEEP [None]
  - BLOOD GLUCOSE DECREASED [None]
  - FLUSHING [None]
